FAERS Safety Report 17128933 (Version 1)
Quarter: 2019Q4

REPORT INFORMATION
  Report Type: Spontaneous
  Country: US (occurrence: US)
  Receive Date: 20191209
  Receipt Date: 20191209
  Transmission Date: 20200122
  Serious: Yes (Hospitalization)
  Sender: FDA-Public Use
  Company Number: US-NORTHSTAR HEALTHCARE HOLDINGS-US-2019NSR000153

PATIENT
  Age: 9 Year
  Sex: Male

DRUGS (4)
  1. BACLOFEN. [Suspect]
     Active Substance: BACLOFEN
     Indication: CEREBRAL PALSY
     Dosage: 148.2 ?G, QD
     Route: 037
     Dates: start: 20180301, end: 20180302
  2. BACLOFEN. [Suspect]
     Active Substance: BACLOFEN
     Dosage: 12.3 ?G, QD
     Route: 037
     Dates: start: 20180302, end: 20180308
  3. AMOXICILLIN. [Concomitant]
     Active Substance: AMOXICILLIN
     Indication: PRODUCT USED FOR UNKNOWN INDICATION
     Dosage: UNK
  4. BACLOFEN. [Suspect]
     Active Substance: BACLOFEN
     Dosage: 96.1 ?G, QD
     Route: 037
     Dates: start: 20180308

REACTIONS (3)
  - Overdose [Unknown]
  - Acute kidney injury [Recovered/Resolved]
  - Toxicity to various agents [Recovered/Resolved]

NARRATIVE: CASE EVENT DATE: 20180301
